FAERS Safety Report 19355221 (Version 3)
Quarter: 2021Q2

REPORT INFORMATION
  Report Type: Report from Study
  Country: US (occurrence: US)
  Receive Date: 20210601
  Receipt Date: 20210624
  Transmission Date: 20210717
  Serious: No
  Sender: FDA-Public Use
  Company Number: US-B.I. PHARMACEUTICALS,INC./RIDGEFIELD-2021-BI-102226

PATIENT
  Age: 69 Year
  Sex: Male

DRUGS (1)
  1. OFEV [Suspect]
     Active Substance: NINTEDANIB
     Indication: IDIOPATHIC PULMONARY FIBROSIS
     Dosage: 150 MG BID
     Route: 048
     Dates: start: 20210419, end: 20210517

REACTIONS (15)
  - Muscle spasms [Not Recovered/Not Resolved]
  - Rash [Recovering/Resolving]
  - Abdominal pain upper [Recovering/Resolving]
  - Abdominal discomfort [Unknown]
  - Pruritus [Unknown]
  - Rash [Not Recovered/Not Resolved]
  - Anger [Not Recovered/Not Resolved]
  - Depression [Unknown]
  - Pruritus [Recovering/Resolving]
  - Irritability [Unknown]
  - Rash pruritic [Unknown]
  - Depression [Not Recovered/Not Resolved]
  - Feeling abnormal [Recovering/Resolving]
  - Headache [Not Recovered/Not Resolved]
  - Abdominal pain [Unknown]

NARRATIVE: CASE EVENT DATE: 202104
